FAERS Safety Report 17404450 (Version 1)
Quarter: 2020Q1

REPORT INFORMATION
  Report Type: Report from Study
  Country: US (occurrence: US)
  Receive Date: 20200211
  Receipt Date: 20200211
  Transmission Date: 20200409
  Serious: Yes (Other)
  Sender: FDA-Public Use
  Company Number: US-GILEAD-2020-0450503

PATIENT
  Age: 75 Year
  Sex: Female

DRUGS (6)
  1. PROPANOL [Concomitant]
     Active Substance: PROPRANOLOL HYDROCHLORIDE
  2. URSODIOL. [Concomitant]
     Active Substance: URSODIOL
  3. AZTREONAM LYSINE [Suspect]
     Active Substance: AZTREONAM LYSINE
     Indication: CYSTIC FIBROSIS
     Dosage: 75 MG, TID
     Route: 065
  4. ALBUTEROL [SALBUTAMOL SULFATE] [Concomitant]
     Active Substance: ALBUTEROL SULFATE
     Dosage: 75 MG, TID
     Dates: start: 20190802
  5. AZATHIOPRINE. [Concomitant]
     Active Substance: AZATHIOPRINE
  6. AZTREONAM LYSINE [Suspect]
     Active Substance: AZTREONAM LYSINE
     Indication: PSEUDOMONAS INFECTION

REACTIONS (4)
  - Autoimmune hepatitis [Not Recovered/Not Resolved]
  - Cough [Not Recovered/Not Resolved]
  - Drug ineffective [Not Recovered/Not Resolved]
  - Mycobacterial infection [Not Recovered/Not Resolved]
